FAERS Safety Report 13188014 (Version 5)
Quarter: 2024Q3

REPORT INFORMATION
  Report Type: Spontaneous
  Country: US (occurrence: US)
  Receive Date: 20170206
  Receipt Date: 20240829
  Transmission Date: 20241016
  Serious: Yes (Death, Hospitalization, Other)
  Sender: AUROBINDO
  Company Number: US-AUROBINDO-AUR-APL-2017-29212

PATIENT
  Age: 51 Year
  Sex: Female

DRUGS (3)
  1. MYCOPHENOLIC ACID [Suspect]
     Active Substance: MYCOPHENOLIC ACID
     Indication: Immunosuppression
     Dosage: UNK
     Route: 065
  2. PREDNISONE [Suspect]
     Active Substance: PREDNISONE
     Indication: Immunosuppression
     Dosage: UNK
     Route: 065
  3. CYCLOSPORINE [Suspect]
     Active Substance: CYCLOSPORINE
     Indication: Immunosuppression
     Dosage: UNK
     Route: 065

REACTIONS (10)
  - West Nile viral infection [Fatal]
  - Brain death [Fatal]
  - Encephalitis brain stem [Unknown]
  - Encephalitis viral [Unknown]
  - Encephalopathy [Unknown]
  - Vomiting [Unknown]
  - Pyrexia [Unknown]
  - Mental status changes [Unknown]
  - Agitation [Unknown]
  - VIth nerve paralysis [Unknown]
